FAERS Safety Report 24013250 (Version 2)
Quarter: 2025Q1

REPORT INFORMATION
  Report Type: Spontaneous
  Country: FR (occurrence: FR)
  Receive Date: 20240626
  Receipt Date: 20250201
  Transmission Date: 20250408
  Serious: Yes (Hospitalization)
  Sender: CELLTRION
  Company Number: FR-CELLTRION INC.-2024FR015013

PATIENT

DRUGS (8)
  1. TRASTUZUMAB [Suspect]
     Active Substance: TRASTUZUMAB
     Indication: Breast cancer
     Route: 042
     Dates: start: 201903
  2. PERTUZUMAB [Suspect]
     Active Substance: PERTUZUMAB
     Indication: Breast cancer
     Route: 042
     Dates: start: 201903
  3. CALCIUM CARBONATE\CHOLECALCIFEROL [Concomitant]
     Active Substance: CALCIUM CARBONATE\CHOLECALCIFEROL
  4. ACTONEL [Concomitant]
     Active Substance: RISEDRONATE SODIUM
  5. PALBOCICLIB [Concomitant]
     Active Substance: PALBOCICLIB
  6. ANASTROZOLE [Concomitant]
     Active Substance: ANASTROZOLE
  7. PREGABALIN [Concomitant]
     Active Substance: PREGABALIN
  8. PAROXETINE [Concomitant]
     Active Substance: PAROXETINE

REACTIONS (1)
  - Migraine [Recovered/Resolved]

NARRATIVE: CASE EVENT DATE: 20210306
